FAERS Safety Report 14542058 (Version 1)
Quarter: 2018Q1

REPORT INFORMATION
  Report Type: Spontaneous
  Country: ES (occurrence: ES)
  Receive Date: 20180216
  Receipt Date: 20180216
  Transmission Date: 20180509
  Serious: Yes (Hospitalization)
  Sender: FDA-Public Use
  Company Number: ES-OTSUKA-DJ20114344

PATIENT

DRUGS (3)
  1. CITALOPRAM [Concomitant]
     Active Substance: CITALOPRAM HYDROBROMIDE
     Indication: DEPRESSION
     Route: 065
     Dates: start: 2011
  2. LEXATIN (BROMAZEPAM) [Concomitant]
     Active Substance: BROMAZEPAM
     Indication: DEPRESSION
     Route: 065
     Dates: start: 2011
  3. ABILIFY [Suspect]
     Active Substance: ARIPIPRAZOLE
     Indication: DELUSIONAL DISORDER, UNSPECIFIED TYPE
     Route: 048
     Dates: start: 20060601, end: 20110701

REACTIONS (1)
  - Thrombophlebitis [Recovered/Resolved]

NARRATIVE: CASE EVENT DATE: 20110623
